FAERS Safety Report 25715803 (Version 3)
Quarter: 2025Q4

REPORT INFORMATION
  Report Type: Spontaneous
  Country: US (occurrence: US)
  Receive Date: 20250822
  Receipt Date: 20251009
  Transmission Date: 20260117
  Serious: Yes (Hospitalization, Other)
  Sender: BRISTOL-MYERS SQUIBB COMPANY
  Company Number: US-BRISTOL-MYERS SQUIBB COMPANY-2025-116842

PATIENT
  Age: 75 Year
  Sex: Female

DRUGS (1)
  1. POMALYST [Suspect]
     Active Substance: POMALIDOMIDE
     Indication: Bone disorder
     Dosage: TAKE 1 CAPSULE BY MOUTH EVERY DAY FOR 21 DAYS

REACTIONS (3)
  - Neoplasm malignant [Unknown]
  - Bone marrow disorder [Not Recovered/Not Resolved]
  - Off label use [Unknown]
